FAERS Safety Report 9207687 (Version 2)
Quarter: 2013Q2

REPORT INFORMATION
  Report Type: Spontaneous
  Country: US (occurrence: US)
  Receive Date: 20130403
  Receipt Date: 20130520
  Transmission Date: 20140414
  Serious: Yes (Death)
  Sender: FDA-Public Use
  Company Number: US-ROCHE-1209612

PATIENT
  Age: 80 Year
  Sex: Female

DRUGS (6)
  1. CELLCEPT [Suspect]
     Indication: AUTOIMMUNE HEPATITIS
     Dosage: DATE OF LAST DOSE OF MEDICATION TAKEN: 25/MAR/2013
     Route: 048
  2. SERTRALINA [Concomitant]
     Route: 065
  3. TRAMADOL [Concomitant]
     Route: 065
  4. PRILOSEC [Concomitant]
  5. LORAZEPAM [Concomitant]
  6. TORSEMIDE [Concomitant]

REACTIONS (1)
  - Sepsis [Fatal]
